FAERS Safety Report 20142096 (Version 1)
Quarter: 2021Q4

REPORT INFORMATION
  Report Type: Spontaneous
  Country: US (occurrence: US)
  Receive Date: 20211202
  Receipt Date: 20211202
  Transmission Date: 20220303
  Serious: Yes (Other)
  Sender: FDA-Public Use
  Company Number: US-HBT LABS-2021HBT00007

PATIENT
  Age: 73 Year
  Sex: Female

DRUGS (12)
  1. FULVESTRANT [Suspect]
     Active Substance: FULVESTRANT
     Indication: Breast cancer female
     Dosage: 500 MG, 1X/MONTH (250 MG IN EACH BUTTOCK)
     Route: 030
     Dates: start: 20210707
  2. FULVESTRANT [Suspect]
     Active Substance: FULVESTRANT
  3. IBRANCE [Concomitant]
     Active Substance: PALBOCICLIB
     Dosage: 100 MG, FOR 21 DAYS FOLLOWED BY 7 DAYS OFF
     Route: 048
     Dates: start: 202107
  4. XGEVA [Concomitant]
     Active Substance: DENOSUMAB
  5. CALCITRIOL [Concomitant]
     Active Substance: CALCITRIOL
  6. CHOLECALCIFEROL [Concomitant]
     Active Substance: CHOLECALCIFEROL
  7. VITAMIN B12 [Concomitant]
     Active Substance: CYANOCOBALAMIN
  8. GINKGO [Concomitant]
     Active Substance: GINKGO
  9. LABETALOL [Concomitant]
     Active Substance: LABETALOL\LABETALOL HYDROCHLORIDE
  10. LEVOTHYROXINE [Concomitant]
     Active Substance: LEVOTHYROXINE
  11. PANTOPRAZOLE [Concomitant]
     Active Substance: PANTOPRAZOLE
  12. HERBALS\TURMERIC [Concomitant]
     Active Substance: HERBALS\TURMERIC

REACTIONS (5)
  - Chest pain [Recovered/Resolved]
  - Dyspnoea [Unknown]
  - Cough [Recovered/Resolved]
  - Hyperhidrosis [Unknown]
  - Inappropriate schedule of product administration [Not Recovered/Not Resolved]

NARRATIVE: CASE EVENT DATE: 20210801
